FAERS Safety Report 7563082-4 (Version None)
Quarter: 2011Q2

REPORT INFORMATION
  Report Type: 
  Country: None (occurrence: None)
  Receive Date: 20110622
  Receipt Date: 20110613
  Transmission Date: 20111010
  Serious: Yes (Other)
  Sender: FDA-Public Use
  Company Number: US-ASTRAZENECA-2011SE30624

PATIENT
  Age: 82 Year
  Sex: Female
  Weight: 44.5 kg

DRUGS (1)
  1. SYMBICORT [Suspect]
     Indication: CHRONIC OBSTRUCTIVE PULMONARY DISEASE
     Dosage: 160/4.5 MCG, 1 INHALATION, TWO TIMES A DAY
     Route: 048

REACTIONS (4)
  - OESOPHAGOGASTRODUODENOSCOPY [None]
  - CANDIDIASIS [None]
  - NECROTISING OESOPHAGITIS [None]
  - WEIGHT DECREASED [None]
